FAERS Safety Report 23098795 (Version 1)
Quarter: 2023Q4

REPORT INFORMATION
  Report Type: Spontaneous
  Country: JP (occurrence: JP)
  Receive Date: 20231024
  Receipt Date: 20231024
  Transmission Date: 20240110
  Serious: Yes (Death, Life-Threatening, Other)
  Sender: FDA-Public Use
  Company Number: JP-TAKEDA-2023TJP006851

PATIENT
  Age: 66 Year
  Sex: Male

DRUGS (6)
  1. AGRYLIN [Suspect]
     Active Substance: ANAGRELIDE HYDROCHLORIDE
     Indication: Essential thrombocythaemia
     Dosage: 1 DOSAGE FORM, QD
     Route: 048
     Dates: start: 20141226, end: 20150109
  2. AGRYLIN [Suspect]
     Active Substance: ANAGRELIDE HYDROCHLORIDE
     Dosage: 1 DOSAGE FORM, BID
     Route: 048
     Dates: start: 20150110, end: 20150123
  3. AGRYLIN [Suspect]
     Active Substance: ANAGRELIDE HYDROCHLORIDE
     Dosage: 1 DOSAGE FORM, TID
     Route: 048
     Dates: start: 20150124, end: 20150206
  4. AGRYLIN [Suspect]
     Active Substance: ANAGRELIDE HYDROCHLORIDE
     Dosage: 2 DOSAGE FORM, BID
     Route: 048
     Dates: start: 20150207, end: 20150725
  5. RANIMUSTINE [Suspect]
     Active Substance: RANIMUSTINE
     Indication: Essential thrombocythaemia
     Dosage: UNK
     Route: 065
     Dates: start: 20071214, end: 20150424
  6. PLAVIX [Concomitant]
     Active Substance: CLOPIDOGREL BISULFATE
     Indication: Transient ischaemic attack
     Dosage: 75 MILLIGRAM, QD
     Route: 065
     Dates: start: 20080222, end: 20150710

REACTIONS (3)
  - Lymphoma [Recovered/Resolved]
  - Lymphoma [Fatal]
  - Prescribed underdose [Recovered/Resolved]

NARRATIVE: CASE EVENT DATE: 20141226
